FAERS Safety Report 6858977-0 (Version None)
Quarter: 2010Q3

REPORT INFORMATION
  Report Type: 
  Country: None (occurrence: None)
  Receive Date: 20100715
  Receipt Date: 20100706
  Transmission Date: 20110219
  Serious: Yes (Hospitalization)
  Sender: FDA-Public Use
  Company Number: RB-11057-2010

PATIENT

DRUGS (1)
  1. SUBOXONE [Suspect]
     Indication: DRUG DEPENDENCE
     Dosage: TRANSPLACENTAL
     Route: 064
     Dates: end: 20100522

REACTIONS (2)
  - HOSPITALISATION [None]
  - MATERNAL DRUGS AFFECTING FOETUS [None]
